FAERS Safety Report 16609041 (Version 1)
Quarter: 2019Q3

REPORT INFORMATION
  Report Type: Spontaneous
  Country: FR (occurrence: FR)
  Receive Date: 20190722
  Receipt Date: 20190722
  Transmission Date: 20191004
  Serious: Yes (Other)
  Sender: FDA-Public Use
  Company Number: FR-PFIZER INC-2019305878

PATIENT
  Age: 18 Year
  Sex: Female

DRUGS (1)
  1. LYRICA [Suspect]
     Active Substance: PREGABALIN
     Indication: SUBSTANCE USE
     Dosage: NP
     Dates: start: 20190629, end: 20190629

REACTIONS (6)
  - Drug diversion [Not Recovered/Not Resolved]
  - Prescription drug used without a prescription [Not Recovered/Not Resolved]
  - Drug use disorder [Not Recovered/Not Resolved]
  - Product use in unapproved indication [Unknown]
  - Substance use [Not Recovered/Not Resolved]
  - Off label use [Unknown]
